FAERS Safety Report 5012320-0 (Version None)
Quarter: 2006Q2

REPORT INFORMATION
  Report Type: 
  Country: None (occurrence: None)
  Receive Date: 20060525
  Receipt Date: 20060525
  Transmission Date: 20061013
  Serious: Yes (Death)
  Sender: FDA-Public Use
  Company Number: None

PATIENT
  Age: 57 Year
  Sex: Female
  Weight: 58.9676 kg

DRUGS (1)
  1. LEXAPRO [Suspect]
     Indication: DEPRESSION
     Dosage: 10 MG TABLET 1 A DAY
     Dates: start: 20040819, end: 20040823

REACTIONS (3)
  - COMPLETED SUICIDE [None]
  - ILL-DEFINED DISORDER [None]
  - NERVOUSNESS [None]
